FAERS Safety Report 6788023-9 (Version None)
Quarter: 2010Q2

REPORT INFORMATION
  Report Type: 
  Country: None (occurrence: None)
  Receive Date: 20100623
  Receipt Date: 20071213
  Transmission Date: 20101027
  Serious: No
  Sender: FDA-Public Use
  Company Number: US-PFIZER INC-2007105689

PATIENT
  Sex: Female
  Weight: 67.272 kg

DRUGS (5)
  1. XALATAN [Suspect]
     Indication: GLAUCOMA
  2. PULMICORT [Concomitant]
  3. DOXYCYCLINE [Concomitant]
  4. CLARITIN [Concomitant]
  5. ALBUTEROL [Concomitant]

REACTIONS (1)
  - EYE IRRITATION [None]
